FAERS Safety Report 5078647-1 (Version None)
Quarter: 2006Q3

REPORT INFORMATION
  Report Type: 
  Country: None (occurrence: None)
  Receive Date: 20060810
  Receipt Date: 20060810
  Transmission Date: 20061208
  Serious: Yes (Death)
  Sender: FDA-Public Use
  Company Number: None

PATIENT
  Age: 28 Year
  Sex: Female
  Weight: 49.8957 kg

DRUGS (1)
  1. PREDNISONE TAB [Suspect]
     Indication: ASTHMA
     Dosage: 3 TABLETS   DAILY  PO
     Route: 048
     Dates: start: 20050101, end: 20050713

REACTIONS (4)
  - ANGER [None]
  - CARDIAC ARREST [None]
  - CEREBRAL DISORDER [None]
  - CONVULSION [None]
